FAERS Safety Report 8089089-9 (Version None)
Quarter: 2012Q1

REPORT INFORMATION
  Report Type: 
  Country: None (occurrence: None)
  Receive Date: 20120128
  Receipt Date: 20110621
  Transmission Date: 20120608
  Serious: No
  Sender: FDA-Public Use
  Company Number: US-ABBOTT-11P-163-0716903-00

PATIENT
  Sex: Male
  Weight: 90.346 kg

DRUGS (10)
  1. MULTI-VITAMIN [Concomitant]
     Indication: PRODUCT USED FOR UNKNOWN INDICATION
  2. AGENT ORANGE [Suspect]
     Indication: ACCIDENTAL EXPOSURE
     Dates: start: 19670101, end: 19680101
  3. HUMIRA [Suspect]
     Indication: SPINAL OSTEOARTHRITIS
     Dates: start: 20080101
  4. LOVASTATIN [Concomitant]
     Indication: HYPERLIPIDAEMIA
  5. ASPIRIN [Concomitant]
     Indication: CARDIAC DISORDER
  6. AMLODIPINE [Concomitant]
     Indication: HYPERTENSION
  7. OMEPRAZOLE [Concomitant]
     Indication: GASTRIC PH DECREASED
  8. COQ10 [Concomitant]
     Indication: SUPPLEMENTATION THERAPY
  9. ACETAMINOPHEN [Concomitant]
     Indication: PRODUCT USED FOR UNKNOWN INDICATION
  10. CALCIUM +D [Concomitant]
     Indication: VITAMIN SUPPLEMENTATION

REACTIONS (2)
  - TYPE 2 DIABETES MELLITUS [None]
  - INJECTION SITE PAIN [None]
